FAERS Safety Report 7765705-3 (Version None)
Quarter: 2011Q3

REPORT INFORMATION
  Report Type: 
  Country: None (occurrence: None)
  Receive Date: 20110921
  Receipt Date: 20110915
  Transmission Date: 20111222
  Serious: Yes (Other)
  Sender: FDA-Public Use
  Company Number: US-ALEXION PHARMACEUTICALS INC.-A201101038

PATIENT
  Sex: Male

DRUGS (1)
  1. SOLIRIS [Suspect]
     Indication: PAROXYSMAL NOCTURNAL HAEMOGLOBINURIA
     Dosage: UNK
     Route: 042
     Dates: end: 20110705

REACTIONS (5)
  - CONDITION AGGRAVATED [None]
  - INFECTION [None]
  - PAROXYSMAL NOCTURNAL HAEMOGLOBINURIA [None]
  - UNEVALUABLE EVENT [None]
  - NEUTROPHIL COUNT DECREASED [None]
